FAERS Safety Report 24767484 (Version 1)
Quarter: 2024Q4

REPORT INFORMATION
  Report Type: Spontaneous
  Country: US (occurrence: US)
  Receive Date: 20241223
  Receipt Date: 20241223
  Transmission Date: 20250115
  Serious: No
  Sender: TAIHO ONCOLOGY INC
  Company Number: US-TAIHOP-2024-012050

PATIENT
  Sex: Female

DRUGS (1)
  1. LYTGOBI [Suspect]
     Active Substance: FUTIBATINIB
     Indication: Cholangiocarcinoma
     Dosage: DOSE, AND FREQUENCY UNKNOWN.
     Route: 048
     Dates: end: 20241206

REACTIONS (2)
  - Musculoskeletal pain [Unknown]
  - Dysgeusia [Unknown]
